FAERS Safety Report 6939588-5 (Version None)
Quarter: 2010Q3

REPORT INFORMATION
  Report Type: 
  Country: None (occurrence: None)
  Receive Date: 20100820
  Receipt Date: 20100804
  Transmission Date: 20110219
  Serious: Yes (Other)
  Sender: FDA-Public Use
  Company Number: 1000015753

PATIENT
  Sex: Female

DRUGS (1)
  1. DINOPROSTONE (DINOPRASTONE) (VAGINAL INSERT) [Suspect]
     Indication: LABOUR INDUCTION
     Dosage: 10MG (10 MG, ONCE), VAGINAL
     Route: 067
     Dates: start: 20100101, end: 20100101

REACTIONS (3)
  - DRUG EXPOSURE DURING PREGNANCY [None]
  - UTERINE RUPTURE [None]
  - VAGINAL HAEMORRHAGE [None]
